FAERS Safety Report 5177510-5 (Version None)
Quarter: 2006Q4

REPORT INFORMATION
  Report Type: 
  Country: None (occurrence: None)
  Receive Date: 20061207
  Receipt Date: 20061128
  Transmission Date: 20070319
  Serious: Yes (Hospitalization)
  Sender: FDA-Public Use
  Company Number: 163-21880-06090970

PATIENT
  Age: 71 Year
  Sex: Male
  Weight: 105.1 kg

DRUGS (17)
  1. REVLIMID [Suspect]
     Indication: LYMPHOPROLIFERATIVE DISORDER
     Dosage: SEE IMAGE
     Route: 048
     Dates: start: 20060720, end: 20060825
  2. REVLIMID [Suspect]
     Indication: MYELODYSPLASTIC SYNDROME
     Dosage: SEE IMAGE
     Route: 048
     Dates: start: 20060720, end: 20060825
  3. REVLIMID [Suspect]
     Indication: LYMPHOPROLIFERATIVE DISORDER
     Dosage: SEE IMAGE
     Route: 048
     Dates: start: 20060802, end: 20060830
  4. REVLIMID [Suspect]
     Indication: MYELODYSPLASTIC SYNDROME
     Dosage: SEE IMAGE
     Route: 048
     Dates: start: 20060802, end: 20060830
  5. TEMAZEPAM [Concomitant]
  6. HYDRALAZINE HCL [Concomitant]
  7. ASPIRIN [Concomitant]
  8. LOVASTATIN [Concomitant]
  9. ALLOPURINOL [Concomitant]
  10. LASIX [Concomitant]
  11. METOPROLOL TARTRATE [Concomitant]
  12. AMIODARONE HCL [Concomitant]
  13. ISOSORIBIDE MONIONITRATE (ISOSORBIDE MONONITRATE) [Concomitant]
  14. NITRO (GLYERYL TRINITRATE) [Concomitant]
  15. DARVOCET-N 50 [Concomitant]
  16. SPIRONOLACTONE (SPIRONOACTONE) [Concomitant]
  17. CENTRUM (CENTRUM) [Concomitant]

REACTIONS (13)
  - ANOREXIA [None]
  - ASTHENIA [None]
  - BLOOD GLUCOSE INCREASED [None]
  - BLOOD SODIUM DECREASED [None]
  - CELLULITIS [None]
  - DIZZINESS [None]
  - DYSPNOEA [None]
  - FATIGUE [None]
  - HYPOTENSION [None]
  - HYPOVOLAEMIA [None]
  - NIGHT SWEATS [None]
  - ORAL INTAKE REDUCED [None]
  - RENAL FAILURE ACUTE [None]
